FAERS Safety Report 5056594-9 (Version None)
Quarter: 2006Q3

REPORT INFORMATION
  Report Type: 
  Country: None (occurrence: None)
  Receive Date: 20060720
  Receipt Date: 20060323
  Transmission Date: 20061208
  Serious: Yes (Other)
  Sender: FDA-Public Use
  Company Number: ES-MERCK-0603ESP00042

PATIENT

DRUGS (2)
  1. ALDOMET [Suspect]
  2. ESCITALOPRAM [Suspect]

REACTIONS (1)
  - HYPOCALCAEMIA [None]
